FAERS Safety Report 25029405 (Version 1)
Quarter: 2025Q1

REPORT INFORMATION
  Report Type: Spontaneous
  Country: CA (occurrence: CA)
  Receive Date: 20250303
  Receipt Date: 20250303
  Transmission Date: 20250409
  Serious: Yes (Death)
  Sender: TEVA
  Company Number: CA-TEVA-VS-3304773

PATIENT
  Sex: Male

DRUGS (2)
  1. OCTREOTIDE ACETATE [Suspect]
     Active Substance: OCTREOTIDE ACETATE
     Indication: Rectal cancer
     Route: 030
  2. HYDROMORPHONE [Concomitant]
     Active Substance: HYDROMORPHONE
     Indication: Product used for unknown indication
     Route: 065

REACTIONS (1)
  - Death [Fatal]
